FAERS Safety Report 6628305-4 (Version None)
Quarter: 2010Q1

REPORT INFORMATION
  Report Type: 
  Country: None (occurrence: None)
  Receive Date: 20100311
  Receipt Date: 20100301
  Transmission Date: 20100710
  Serious: Yes (Other)
  Sender: FDA-Public Use
  Company Number: US-ROCHE-669594

PATIENT
  Sex: Male
  Weight: 92.1 kg

DRUGS (11)
  1. TOCILIZUMAB [Suspect]
     Indication: RHEUMATOID ARTHRITIS
     Dosage: STUDY INFUSION HOLD. TEMPORARILY INTERRUPTED.LAST DOSE PRIOR TO SAE 23 SEP 2009.
     Route: 042
     Dates: start: 20061220, end: 20090923
  2. TOCILIZUMAB [Suspect]
     Dosage: PREVIOUSLY IN STUDY WA17824.
     Route: 042
  3. DETROL LA [Concomitant]
     Dates: start: 20071031
  4. ECOTRIN [Concomitant]
     Dates: start: 20051214
  5. FEXOFENADINE HCL AND PSEUDOEPHEDRINE HCL [Concomitant]
     Dosage: TOTAL DAILY DOSE REPORTED: 60-120 MG.
     Dates: start: 20090519
  6. HYDROCONE [Concomitant]
     Dosage: DOSE REPORTED AS: 55-50 MG, DRUG REPORTED AS: HYDROCODON ACETAMINOPHEN.
     Dates: start: 20090909
  7. LEUCOVORIN CALCIUM [Concomitant]
  8. NITROGLYCERIN [Concomitant]
     Dates: start: 20090805
  9. RANITIDINE HCL [Concomitant]
     Dates: start: 20051214
  10. SIMVASTATIN [Concomitant]
     Dates: start: 20080615
  11. CORTICOSTEROIDS [Concomitant]
     Route: 048

REACTIONS (1)
  - KERATITIS HERPETIC [None]
